FAERS Safety Report 18963630 (Version 2)
Quarter: 2021Q1

REPORT INFORMATION
  Report Type: Spontaneous
  Country: IL (occurrence: IL)
  Receive Date: 20210303
  Receipt Date: 20210324
  Transmission Date: 20210420
  Serious: Yes (Death, Other)
  Sender: FDA-Public Use
  Company Number: IL-BAXTER-2021BAX004220

PATIENT
  Age: 40 Year
  Sex: Female

DRUGS (3)
  1. HOLOXAN 2G [Suspect]
     Active Substance: IFOSFAMIDE
     Indication: HEPATIC ANGIOSARCOMA
     Route: 065
  2. PEGFILGRASTIM [Concomitant]
     Active Substance: PEGFILGRASTIM
     Indication: PROPHYLAXIS
     Route: 058
  3. DOXIL [Suspect]
     Active Substance: DOXORUBICIN HYDROCHLORIDE
     Indication: HEPATIC ANGIOSARCOMA
     Route: 065

REACTIONS (6)
  - Neurotoxicity [Unknown]
  - Escherichia bacteraemia [Fatal]
  - Sepsis [Fatal]
  - Metabolic encephalopathy [Unknown]
  - Pancytopenia [Unknown]
  - Neutropenia [Unknown]
